FAERS Safety Report 5132443-5 (Version None)
Quarter: 2006Q4

REPORT INFORMATION
  Report Type: 
  Country: None (occurrence: None)
  Receive Date: 20061023
  Receipt Date: 20061013
  Transmission Date: 20070319
  Serious: Yes (Other)
  Sender: FDA-Public Use
  Company Number: IT-AVENTIS-200620746GDDC

PATIENT
  Age: 39 Year
  Sex: Male

DRUGS (3)
  1. CISPLATIN [Suspect]
     Indication: NEOPLASM MALIGNANT
     Dosage: DOSE: 180 MG
     Route: 040
  2. FLUOROURACIL [Suspect]
     Indication: NEOPLASM MALIGNANT
     Dosage: DOSE: 100 MG/M**2 FOR 5 DAYS
     Route: 041
  3. FLUOROURACIL [Suspect]
     Indication: TONGUE DISORDER
     Dosage: DOSE: 100 MG/M**2 FOR 5 DAYS
     Route: 041

REACTIONS (2)
  - MYOCARDIAL ISCHAEMIA [None]
  - VENTRICULAR EXTRASYSTOLES [None]
